FAERS Safety Report 7473798-6 (Version None)
Quarter: 2011Q2

REPORT INFORMATION
  Report Type: 
  Country: None (occurrence: None)
  Receive Date: 20110511
  Receipt Date: 20110502
  Transmission Date: 20111010
  Serious: Yes (Hospitalization)
  Sender: FDA-Public Use
  Company Number: FR-ASTRAZENECA-2011SE26762

PATIENT
  Sex: Female
  Weight: 71 kg

DRUGS (3)
  1. VANCOMYCIN HCL [Suspect]
     Route: 042
     Dates: start: 20110411, end: 20110413
  2. NEXIUM [Suspect]
     Route: 048
     Dates: start: 20110411, end: 20110420
  3. XENETIX [Suspect]
     Route: 042
     Dates: start: 20110414, end: 20110414

REACTIONS (2)
  - PRURITUS [None]
  - PURPURA [None]
